FAERS Safety Report 9320328 (Version 3)
Quarter: 2013Q3

REPORT INFORMATION
  Report Type: Report from Study
  Country: US (occurrence: US)
  Receive Date: 20130530
  Receipt Date: 20130816
  Transmission Date: 20140515
  Serious: Yes (Hospitalization)
  Sender: FDA-Public Use
  Company Number: US-US-EMD SERONO, INC.-7201594

PATIENT
  Age: 28 Year
  Sex: Female

DRUGS (2)
  1. REBIF [Suspect]
     Indication: MULTIPLE SCLEROSIS
     Route: 058
     Dates: start: 20111228, end: 20121221
  2. REBIF [Suspect]
     Route: 058
     Dates: start: 201304

REACTIONS (7)
  - Aphagia [Not Recovered/Not Resolved]
  - Multiple sclerosis [Not Recovered/Not Resolved]
  - Multiple sclerosis relapse [Recovering/Resolving]
  - Hepatomegaly [Recovering/Resolving]
  - Faecal incontinence [Not Recovered/Not Resolved]
  - Fall [Unknown]
  - Urinary incontinence [Not Recovered/Not Resolved]
